FAERS Safety Report 5661133-5 (Version None)
Quarter: 2008Q1

REPORT INFORMATION
  Report Type: 
  Country: None (occurrence: None)
  Receive Date: 20080306
  Receipt Date: 20080225
  Transmission Date: 20080703
  Serious: Yes (Hospitalization)
  Sender: FDA-Public Use
  Company Number: B0510521A

PATIENT
  Age: 81 Year
  Sex: Female

DRUGS (12)
  1. LAMOTRIGINE [Suspect]
     Indication: BIPOLAR DISORDER
     Dosage: ORAL
     Route: 048
  2. LOPERAMIDE HYDROCHLORIDE [Concomitant]
  3. BUPROPION HYDROCHLORIDE [Concomitant]
  4. LEVOTHYROXINE SODIUM [Concomitant]
  5. QUETIAPINE FUMARATE [Concomitant]
  6. LORAZEPAM [Concomitant]
  7. MULTI-VITAMIN [Concomitant]
  8. PSYLLIUM HUSK [Concomitant]
  9. DOCUSATE [Concomitant]
  10. ZINC SULFATE [Concomitant]
  11. CALCIUM CARBONATE [Concomitant]
  12. VITAMIN E [Concomitant]

REACTIONS (13)
  - ALANINE AMINOTRANSFERASE INCREASED [None]
  - ASPARTATE AMINOTRANSFERASE INCREASED [None]
  - BLOOD ALBUMIN DECREASED [None]
  - BLOOD ALKALINE PHOSPHATASE INCREASED [None]
  - BLOOD LACTATE DEHYDROGENASE INCREASED [None]
  - CHILLS [None]
  - DRUG HYPERSENSITIVITY [None]
  - HEADACHE [None]
  - HEPATIC FUNCTION ABNORMAL [None]
  - NAUSEA [None]
  - PYREXIA [None]
  - RASH MACULO-PAPULAR [None]
  - RED BLOOD CELL SEDIMENTATION RATE INCREASED [None]
